FAERS Safety Report 12522190 (Version 2)
Quarter: 2016Q3

REPORT INFORMATION
  Report Type: Spontaneous
  Country: US (occurrence: US)
  Receive Date: 20160701
  Receipt Date: 20160701
  Transmission Date: 20161109
  Serious: Yes (Other)
  Sender: FDA-Public Use
  Company Number: US-BAYER-2016-125212

PATIENT
  Sex: Female

DRUGS (5)
  1. ONE A DAY WOMEN^S 50+ HEALTHY ADVANTAGE [Suspect]
     Active Substance: VITAMINS
     Dosage: UNK
  2. CALCIUM [Concomitant]
     Active Substance: CALCIUM
  3. BAYER LOW DOSE [Suspect]
     Active Substance: ASPIRIN
     Dosage: UNK, QD
  4. ALEVE [Concomitant]
     Active Substance: NAPROXEN SODIUM
  5. BIOTIN [Concomitant]
     Active Substance: BIOTIN

REACTIONS (4)
  - Product use issue [None]
  - Anaemia [None]
  - Renal failure [None]
  - Fatigue [None]

NARRATIVE: CASE EVENT DATE: 201606
